FAERS Safety Report 4956380-1 (Version None)
Quarter: 2006Q1

REPORT INFORMATION
  Report Type: 
  Country: None (occurrence: None)
  Receive Date: 20060323
  Receipt Date: 20060310
  Transmission Date: 20060701
  Serious: Yes (Hospitalization)
  Sender: FDA-Public Use
  Company Number: 2006035527

PATIENT
  Age: 32 Day
  Sex: Female

DRUGS (4)
  1. AMLODIPINE [Suspect]
     Indication: ESSENTIAL HYPERTENSION
     Dosage: ORAL
     Route: 048
  2. PREDNISONE TAB [Suspect]
     Indication: ILL-DEFINED DISORDER
     Dosage: ORAL
     Route: 048
  3. AZATHIOPRINE [Suspect]
     Indication: ILL-DEFINED DISORDER
     Dosage: ORAL
     Route: 048
  4. TACROLIMUS (TACROLIMUS) [Suspect]
     Indication: ILL-DEFINED DISORDER
     Dosage: ORAL
     Route: 048

REACTIONS (13)
  - ACRODERMATITIS ENTEROPATHICA [None]
  - C-REACTIVE PROTEIN INCREASED [None]
  - DERMATITIS [None]
  - DRUG EXPOSURE DURING PREGNANCY [None]
  - ESCHERICHIA INFECTION [None]
  - INFLAMMATION [None]
  - MINERAL DEFICIENCY [None]
  - NEONATAL DISORDER [None]
  - RHESUS INCOMPATIBILITY [None]
  - SKIN LESION [None]
  - TRANSFUSION REACTION [None]
  - VOMITING NEONATAL [None]
  - WEIGHT DECREASE NEONATAL [None]
